FAERS Safety Report 8032727-7 (Version None)
Quarter: 2011Q4

REPORT INFORMATION
  Report Type: 
  Country: None (occurrence: None)
  Receive Date: 20111229
  Receipt Date: 20111220
  Transmission Date: 20120403
  Serious: Yes (Death, Hospitalization)
  Sender: FDA-Public Use
  Company Number: 2011308238

PATIENT
  Age: 88 Year
  Sex: Male

DRUGS (11)
  1. FUROSEMIDE [Concomitant]
  2. ENALAPRIL MALEATE [Concomitant]
  3. CLOPIDOGREL [Suspect]
     Indication: CEREBRAL THROMBOSIS
     Dosage: 75 MG, 1X/DAY, ORAL
     Route: 048
     Dates: start: 20111017, end: 20111120
  4. INOLAXOL (STERCULIA) [Concomitant]
  5. MADOPARK - SLOW RELEASE (BENSERAZIDE HYDROCHLORIDE, LEVODOPA) [Concomitant]
  6. TRIOBE (CYANOCOBALAMIN, FOLIC ACID, PYRIDOXINE) [Concomitant]
  7. FRAGMIN [Suspect]
     Indication: FEMUR FRACTURE
     Dosage: UNK
     Dates: start: 20111101
  8. WARFARIN SODIUM [Suspect]
     Indication: CARDIAC DISORDER
     Dosage: UNK, ORAL
     Route: 048
     Dates: start: 19870101, end: 20111122
  9. BISOPROLOL FUMARATE [Concomitant]
  10. STILNOCT (ZOLPIDEM TARTRATE) [Concomitant]
  11. CABERGOLINE [Concomitant]

REACTIONS (6)
  - CEREBRAL HAEMORRHAGE [None]
  - LOSS OF CONSCIOUSNESS [None]
  - FALL [None]
  - HYDROCEPHALUS [None]
  - INTERNATIONAL NORMALISED RATIO INCREASED [None]
  - HIP SURGERY [None]
